FAERS Safety Report 7445149-4 (Version None)
Quarter: 2011Q2

REPORT INFORMATION
  Report Type: 
  Country: None (occurrence: None)
  Receive Date: 20110429
  Receipt Date: 20101101
  Transmission Date: 20111010
  Serious: Yes (Hospitalization, Other)
  Sender: FDA-Public Use
  Company Number: US-BAYER-201031792NA

PATIENT
  Age: 41 Year
  Sex: Female
  Weight: 118.37 kg

DRUGS (10)
  1. YAZ [Suspect]
     Indication: PRODUCT USED FOR UNKNOWN INDICATION
     Route: 048
     Dates: start: 20070601
  2. FLUCONAZOLE [Concomitant]
  3. CLARITHROMYCIN [Concomitant]
  4. SINGULAIR [Concomitant]
  5. XOPENEX [Concomitant]
  6. PREDNISONE [Concomitant]
     Indication: PNEUMONIA
     Dosage: UNK
     Dates: start: 20070716
  7. POTASSIUM CHLORIDE [Concomitant]
  8. HYDROCODONE BITARTRATE AND ACETAMINOPHEN [Concomitant]
  9. SPIRONOLACTONE [Concomitant]
  10. PROMETHAZINE W/ CODEINE [Concomitant]

REACTIONS (5)
  - DEEP VEIN THROMBOSIS [None]
  - PAIN [None]
  - PAIN IN EXTREMITY [None]
  - POST THROMBOTIC SYNDROME [None]
  - OEDEMA PERIPHERAL [None]
